FAERS Safety Report 6068589-7 (Version None)
Quarter: 2009Q1

REPORT INFORMATION
  Report Type: 
  Country: None (occurrence: None)
  Receive Date: 20090206
  Receipt Date: 20060929
  Transmission Date: 20090719
  Serious: Yes (Hospitalization)
  Sender: FDA-Public Use
  Company Number: FR-PFIZER INC-2005161368

PATIENT

DRUGS (4)
  1. SUNITINIB MALATE [Suspect]
     Indication: RENAL CELL CARCINOMA
     Dosage: 50 MG, 1X/DAY
     Route: 048
     Dates: start: 20050502
  2. LISINOPRIL [Concomitant]
     Route: 048
     Dates: start: 19950101
  3. PRAVASTATIN [Concomitant]
     Route: 048
     Dates: start: 19950101
  4. LANZOR [Concomitant]
     Route: 048
     Dates: start: 20050517

REACTIONS (1)
  - ANAL FISTULA [None]
